FAERS Safety Report 26037766 (Version 2)
Quarter: 2025Q4

REPORT INFORMATION
  Report Type: Spontaneous
  Country: US (occurrence: US)
  Receive Date: 20251112
  Receipt Date: 20251226
  Transmission Date: 20260118
  Serious: Yes (Other)
  Sender: BRACCO
  Company Number: US-MacroGenics-20240900023

PATIENT
  Age: 53 Year
  Sex: Male
  Weight: 113.5 kg

DRUGS (14)
  1. LUMASON [Suspect]
     Active Substance: SULFUR HEXAFLUORIDE
     Indication: Echocardiogram
     Dosage: 2 ML, SINGLE
     Dates: start: 20241002, end: 20241002
  2. LUMASON [Suspect]
     Active Substance: SULFUR HEXAFLUORIDE
  3. LUMASON [Suspect]
     Active Substance: SULFUR HEXAFLUORIDE
  4. ZYRTEC [Concomitant]
     Active Substance: CETIRIZINE HYDROCHLORIDE
  5. ELIQUIS [Concomitant]
     Active Substance: APIXABAN
  6. CRESTOR [Concomitant]
     Active Substance: ROSUVASTATIN CALCIUM
  7. PROTONIX [Concomitant]
     Active Substance: PANTOPRAZOLE SODIUM
  8. LOSARTAN [Concomitant]
     Active Substance: LOSARTAN
  9. OXYGEN [Concomitant]
     Active Substance: OXYGEN
     Dosage: 10 L VIA NASAL CANNULA
  10. OXYGEN [Concomitant]
     Active Substance: OXYGEN
     Dosage: 40 L/MIN INCREASED TO HIGH FLOW (HFNC)
  11. LASIX [Concomitant]
     Active Substance: FUROSEMIDE
     Dosage: UNK
  12. TRIAMCINOLONE ACETONIDE [Concomitant]
     Active Substance: TRIAMCINOLONE ACETONIDE
     Dosage: UNK
  13. PREDNISONE [Concomitant]
     Active Substance: PREDNISONE
     Dosage: DOSE INCREASED TO 115 MG  (DAY12) CYCLE 1
  14. SOLU-MEDROL [Concomitant]
     Active Substance: METHYLPREDNISOLONE SODIUM SUCCINATE
     Dosage: DECREASED TO 1MG/KG DAILY.

REACTIONS (1)
  - Anaphylactic reaction [Recovered/Resolved]

NARRATIVE: CASE EVENT DATE: 20241002
